FAERS Safety Report 8211775 (Version 2)
Quarter: 2012Q4

REPORT INFORMATION
  Report Type: 
  Country: US (occurrence: US)
  Receive Date: 20111029
  Receipt Date: 20121023
  Transmission Date: 20130627
  Serious: No
  Sender: FDA-Public Use
  Company Number: US-AMGEN-USASP2011010703

PATIENT
  Age: 6 Year
  Sex: Female
  Weight: 22 kg

DRUGS (2)
  1. ENBREL [Suspect]
     Indication: JUVENILE ARTHRITIS
     Dosage: 25 mg, qwk
     Dates: start: 20080210
  2. METHOTREXATE [Concomitant]

REACTIONS (4)
  - Temporomandibular joint syndrome [Not Recovered/Not Resolved]
  - Arthralgia [Not Recovered/Not Resolved]
  - Mobility decreased [Not Recovered/Not Resolved]
  - Joint swelling [Not Recovered/Not Resolved]
